FAERS Safety Report 6185913-5 (Version None)
Quarter: 2009Q2

REPORT INFORMATION
  Report Type: 
  Country: None (occurrence: None)
  Receive Date: 20090511
  Receipt Date: 20090429
  Transmission Date: 20091009
  Serious: Yes (Other)
  Sender: FDA-Public Use
  Company Number: US-ELI_LILLY_AND_COMPANY-US200802000280

PATIENT
  Sex: Male
  Weight: 86.168 kg

DRUGS (13)
  1. SOMATROPIN [Suspect]
     Indication: GROWTH HORMONE DEFICIENCY
     Dosage: 0.16 MG, DAILY (1/D)
     Dates: start: 20010706
  2. SOMATROPIN [Suspect]
     Dosage: 0.16 MG, DAILY (1/D)
     Dates: start: 20080115
  3. CADUET [Concomitant]
     Indication: HYPERLIPIDAEMIA
     Route: 048
  4. LEVOXYL [Concomitant]
     Indication: HYPOTHYROIDISM
     Route: 048
     Dates: start: 20020906
  5. PREDNISONE [Concomitant]
     Indication: ADRENAL INSUFFICIENCY
     Route: 048
     Dates: start: 20051003
  6. PRILOSEC [Concomitant]
     Route: 048
     Dates: start: 20040504
  7. FLOMAX [Concomitant]
     Indication: ASTHMA
     Route: 048
  8. ANDROGEL [Concomitant]
     Indication: HYPOGONADISM
     Route: 061
     Dates: start: 20010103
  9. VITAMIN B6 [Concomitant]
     Indication: ANAEMIA
  10. SYMBICORT [Concomitant]
     Indication: ASTHMA
     Route: 055
  11. ASPIRIN [Concomitant]
     Indication: PROPHYLAXIS
     Route: 048
     Dates: start: 20070910
  12. ICAPS [Concomitant]
     Indication: HYPERLIPIDAEMIA
     Route: 048
  13. FISH OIL [Concomitant]
     Indication: HYPERLIPIDAEMIA
     Route: 048

REACTIONS (1)
  - BLADDER NEOPLASM [None]
